FAERS Safety Report 7261215-0 (Version None)
Quarter: 2011Q1

REPORT INFORMATION
  Report Type: 
  Country: None (occurrence: None)
  Receive Date: 20110130
  Receipt Date: 20100929
  Transmission Date: 20110831
  Serious: No
  Sender: FDA-Public Use
  Company Number: US-ABBOTT-10P-163-0674436-00

PATIENT
  Sex: Female
  Weight: 120.31 kg

DRUGS (3)
  1. HUMIRA [Suspect]
     Indication: CROHN'S DISEASE
     Route: 058
     Dates: start: 20070101
  2. METFORMIN [Concomitant]
     Indication: DIABETES MELLITUS
  3. BACTRIM [Suspect]
     Indication: URINARY TRACT INFECTION
     Dates: start: 20100914, end: 20100922

REACTIONS (5)
  - PARAESTHESIA [None]
  - JOINT SWELLING [None]
  - GAIT DISTURBANCE [None]
  - ERYTHEMA [None]
  - URINARY TRACT INFECTION [None]
